FAERS Safety Report 11448796 (Version 1)
Quarter: 2015Q3

REPORT INFORMATION
  Report Type: Report from Study
  Country: FR (occurrence: FR)
  Receive Date: 20150902
  Receipt Date: 20150902
  Transmission Date: 20151125
  Serious: Yes (Hospitalization)
  Sender: FDA-Public Use
  Company Number: FR-GLAXOSMITHKLINE-FR2015GSK123596

PATIENT
  Age: 40 Year
  Sex: Female
  Weight: 72 kg

DRUGS (7)
  1. DEXERYL (CHLORPHENAMINE MALEATE+DEXTROMETHORPHAN HBR+GUAIFENESIN+PHENY [Concomitant]
  2. DIPROSONE [Concomitant]
     Active Substance: BETAMETHASONE DIPROPIONATE
  3. ESTRAVA [Concomitant]
  4. SMECTA [Concomitant]
     Active Substance: MONTMORILLONITE
  5. AERIUS [Concomitant]
     Active Substance: DESLORATADINE
  6. TYKERB [Suspect]
     Active Substance: LAPATINIB DITOSYLATE
     Indication: METASTASIS
     Dosage: 1500 MG, QD
     Route: 048
     Dates: start: 20150420
  7. ERYFLUID [Concomitant]
     Active Substance: ERYTHROMYCIN

REACTIONS (1)
  - Lung disorder [Not Recovered/Not Resolved]

NARRATIVE: CASE EVENT DATE: 20150818
